FAERS Safety Report 7256030-8 (Version None)
Quarter: 2011Q1

REPORT INFORMATION
  Report Type: 
  Country: None (occurrence: None)
  Receive Date: 20110129
  Receipt Date: 20100505
  Transmission Date: 20110831
  Serious: Yes (Hospitalization)
  Sender: FDA-Public Use
  Company Number: US-ABBOTT-10P-163-0639227-00

PATIENT
  Sex: Female
  Weight: 100.33 kg

DRUGS (7)
  1. HUMIRA [Suspect]
     Indication: RHEUMATOID ARTHRITIS
     Dates: start: 20080101
  2. HUMIRA [Suspect]
     Indication: PSORIATIC ARTHROPATHY
     Dates: start: 20080101, end: 20080101
  3. KLONOPIN [Concomitant]
     Indication: STRESS
  4. HYZAAR [Concomitant]
     Indication: HYPERTENSION
  5. NORVASC [Concomitant]
     Indication: HYPERTENSION
  6. CYMBALTA [Concomitant]
     Indication: FIBROMYALGIA
  7. CYMBALTA [Concomitant]
     Indication: DEPRESSION

REACTIONS (8)
  - CARPAL TUNNEL SYNDROME [None]
  - TRIGGER FINGER [None]
  - PSORIASIS [None]
  - RHEUMATOID ARTHRITIS [None]
  - OROPHARYNGEAL PAIN [None]
  - PAIN [None]
  - NASOPHARYNGITIS [None]
  - HYPERSENSITIVITY [None]
